FAERS Safety Report 7514657-X (Version None)
Quarter: 2011Q2

REPORT INFORMATION
  Report Type: 
  Country: None (occurrence: None)
  Receive Date: 20110601
  Receipt Date: 20101227
  Transmission Date: 20111010
  Serious: Yes (Other)
  Sender: FDA-Public Use
  Company Number: US-BAYER-201018964NA

PATIENT
  Age: 18 Year
  Sex: Female
  Weight: 92.517 kg

DRUGS (10)
  1. YAZ [Suspect]
     Indication: ACNE
     Route: 048
     Dates: start: 20061030
  2. DROSPIRENONE AND ETHINYL ESTRADIOL [Suspect]
     Indication: AMENORRHOEA
     Route: 048
     Dates: start: 20061030
  3. YAZ [Suspect]
     Indication: MENSTRUATION IRREGULAR
  4. YASMIN [Suspect]
     Indication: ACNE
  5. DROSPIRENONE AND ETHINYL ESTRADIOL [Suspect]
     Indication: MENSTRUATION IRREGULAR
  6. YASMIN [Suspect]
     Indication: MENSTRUATION IRREGULAR
  7. IBUPROFEN [Concomitant]
  8. VICODIN [Concomitant]
  9. DROSPIRENONE AND ETHINYL ESTRADIOL [Suspect]
     Indication: ACNE
  10. YASMIN [Suspect]
     Indication: AMENORRHOEA
     Route: 048
     Dates: start: 20061030

REACTIONS (7)
  - NAUSEA [None]
  - CHOLECYSTITIS [None]
  - ABDOMINAL PAIN UPPER [None]
  - CHOLELITHIASIS [None]
  - ASTHENIA [None]
  - PAIN [None]
  - GALLBLADDER CHOLESTEROLOSIS [None]
